FAERS Safety Report 10668479 (Version 9)
Quarter: 2017Q3

REPORT INFORMATION
  Report Type: Report from Study
  Country: US (occurrence: US)
  Receive Date: 20141222
  Receipt Date: 20170712
  Transmission Date: 20171127
  Serious: Yes (Hospitalization, Other)
  Sender: FDA-Public Use
  Company Number: US-SA-2013SA115554

PATIENT
  Age: 62 Year
  Sex: Female
  Weight: 52.16 kg

DRUGS (10)
  1. LEVETIRACETAM. [Concomitant]
     Active Substance: LEVETIRACETAM
     Indication: MULTIPLE SCLEROSIS
     Dates: start: 201202
  2. DANTROLENE [Concomitant]
     Active Substance: DANTROLENE
     Indication: MULTIPLE SCLEROSIS
     Dates: start: 201202
  3. BUDESONIDE. [Concomitant]
     Active Substance: BUDESONIDE
     Indication: FUNCTIONAL GASTROINTESTINAL DISORDER
     Dates: start: 20120430
  4. FISH OIL [Concomitant]
     Active Substance: FISH OIL
  5. AMPYRA [Concomitant]
     Active Substance: DALFAMPRIDINE
  6. AUBAGIO [Suspect]
     Active Substance: TERIFLUNOMIDE
     Indication: MULTIPLE SCLEROSIS
     Route: 048
     Dates: start: 20130101, end: 20130319
  7. AUBAGIO [Suspect]
     Active Substance: TERIFLUNOMIDE
     Indication: MULTIPLE SCLEROSIS
     Route: 048
     Dates: start: 20130604
  8. METFORMIN [Concomitant]
     Active Substance: METFORMIN HYDROCHLORIDE
     Indication: DIABETES MELLITUS
     Dates: start: 201302
  9. BACLOFEN. [Concomitant]
     Active Substance: BACLOFEN
     Indication: MULTIPLE SCLEROSIS
     Dosage: 4 X
     Dates: start: 201209
  10. AUBAGIO [Suspect]
     Active Substance: TERIFLUNOMIDE
     Indication: MULTIPLE SCLEROSIS
     Route: 048
     Dates: start: 201210

REACTIONS (13)
  - Malaise [Unknown]
  - Aspiration [Not Recovered/Not Resolved]
  - Hair texture abnormal [Unknown]
  - Nasopharyngitis [Recovered/Resolved]
  - Alopecia [Not Recovered/Not Resolved]
  - Feeding disorder [Unknown]
  - Weight decreased [Unknown]
  - Diarrhoea [Unknown]
  - Vomiting [Unknown]
  - Seizure [Recovered/Resolved]
  - Colitis [Unknown]
  - Influenza [Unknown]
  - Unevaluable event [Not Recovered/Not Resolved]

NARRATIVE: CASE EVENT DATE: 201303
